FAERS Safety Report 10776185 (Version 1)
Quarter: 2015Q1

REPORT INFORMATION
  Report Type: Other
  Country: US (occurrence: US)
  Receive Date: 20150209
  Receipt Date: 20150209
  Transmission Date: 20150721
  Serious: Yes (Death)
  Sender: FDA-Public Use
  Company Number: US-FRI-1000074329

PATIENT
  Age: 51 Year
  Sex: Male

DRUGS (4)
  1. CITALOPRAM [Suspect]
     Active Substance: CITALOPRAM HYDROBROMIDE
  2. METHADONE [Suspect]
     Active Substance: METHADONE HYDROCHLORIDE
  3. ALPRAZOLAM. [Suspect]
     Active Substance: ALPRAZOLAM
  4. ETHANOL [Suspect]
     Active Substance: ALCOHOL

REACTIONS (1)
  - Death [Fatal]
